FAERS Safety Report 8779060 (Version 3)
Quarter: 2012Q4

REPORT INFORMATION
  Report Type: 
  Country: JP (occurrence: JP)
  Receive Date: 20120912
  Receipt Date: 20121204
  Transmission Date: 20130627
  Serious: Yes (Other)
  Sender: FDA-Public Use
  Company Number: JP-PFIZER INC-2012223346

PATIENT
  Age: 55 Year
  Sex: Female
  Weight: 54 kg

DRUGS (3)
  1. CADUET [Suspect]
     Indication: HYPERTENSION
     Dosage: UNK, daily
     Route: 048
     Dates: start: 20120711, end: 20120829
  2. CADUET [Suspect]
     Indication: HYPERCHOLESTEROLAEMIA
  3. MOHRUS [Concomitant]
     Indication: LOW BACK PAIN
     Dosage: 20 mg, daily
     Dates: start: 20120711

REACTIONS (1)
  - Urinary retention [Recovered/Resolved]
